FAERS Safety Report 4459517-6 (Version None)
Quarter: 2004Q3

REPORT INFORMATION
  Report Type: 
  Country: None (occurrence: None)
  Receive Date: 20040910
  Receipt Date: 20040528
  Transmission Date: 20050211
  Serious: No
  Sender: FDA-Public Use
  Company Number: 2004216509US

PATIENT
  Age: 49 Year
  Sex: Female

DRUGS (3)
  1. BEXTRA [Suspect]
     Indication: ARTHRALGIA
     Dosage: 10 MG, QD, UNK
     Route: 065
     Dates: start: 20040522, end: 20040528
  2. CIPRO [Concomitant]
  3. NEXIUM [Concomitant]

REACTIONS (1)
  - SKIN DISORDER [None]
